FAERS Safety Report 7830357-0 (Version None)
Quarter: 2011Q4

REPORT INFORMATION
  Report Type: 
  Country: None (occurrence: None)
  Receive Date: 20111019
  Receipt Date: 20111010
  Transmission Date: 20120403
  Serious: Yes (Other)
  Sender: FDA-Public Use
  Company Number: AUR-APL-2011-05434

PATIENT
  Age: 28 Day
  Sex: Female
  Weight: 3.33 kg

DRUGS (2)
  1. LAMOTRIGINE [Suspect]
     Indication: EPILEPSY
     Dosage: 200 MG (100 MG, 2 IN 1 D), TRANSMAMMARY
     Route: 063
     Dates: start: 20110127, end: 20110216
  2. VALPROIC ACID [Suspect]
     Indication: EPILEPSY
     Dosage: 600 MG (300 MG, 2 IN 1 D), TRANSMAMMARY
     Route: 063
     Dates: start: 20110127, end: 20110216

REACTIONS (5)
  - POOR SUCKING REFLEX [None]
  - MATERNAL DRUGS AFFECTING FOETUS [None]
  - SOMNOLENCE NEONATAL [None]
  - TREMOR NEONATAL [None]
  - BLOOD GLUCOSE DECREASED [None]
